FAERS Safety Report 8043339-3 (Version None)
Quarter: 2012Q1

REPORT INFORMATION
  Report Type: 
  Country: None (occurrence: None)
  Receive Date: 20120112
  Receipt Date: 20120106
  Transmission Date: 20120608
  Serious: Yes (Hospitalization)
  Sender: FDA-Public Use
  Company Number: JP-GLAXOSMITHKLINE-B0774551A

PATIENT
  Age: 30 Year
  Sex: Female

DRUGS (5)
  1. SEPAZON [Concomitant]
     Route: 048
  2. LAMICTAL [Suspect]
     Indication: BIPOLAR II DISORDER
     Dosage: 25MG PER DAY
     Route: 048
     Dates: start: 20111115
  3. ZOLPIDEM [Concomitant]
     Dosage: 10MG PER DAY
     Route: 048
  4. LAMICTAL [Suspect]
     Dosage: 50MG PER DAY
     Route: 048
     Dates: end: 20111221
  5. DEPAKENE [Concomitant]
     Dosage: 1000MG PER DAY
     Route: 048

REACTIONS (5)
  - NASOPHARYNGITIS [None]
  - PYREXIA [None]
  - DRUG ERUPTION [None]
  - RASH [None]
  - RASH GENERALISED [None]
